FAERS Safety Report 22348197 (Version 1)
Quarter: 2023Q2

REPORT INFORMATION
  Report Type: Spontaneous
  Country: ES (occurrence: ES)
  Receive Date: 20230522
  Receipt Date: 20230522
  Transmission Date: 20230722
  Serious: Yes (Hospitalization)
  Sender: FDA-Public Use
  Company Number: ES-DENTSPLY-2023SCDP000153

PATIENT
  Sex: Female

DRUGS (2)
  1. LIDOCAINE HYDROCHLORIDE AND EPINEPHRINE BITARTRATE [Suspect]
     Active Substance: EPINEPHRINE BITARTRATE\LIDOCAINE HYDROCHLORIDE
     Indication: Dental local anaesthesia
     Dosage: UNK DOSE OF LIDOCAINE/EPINEPHRINE NORMON 20 MG/ML + 0.0125 MG/ML EFG INJECTABLE SOLUTION/SOLUTION FO
     Route: 004
     Dates: start: 202303, end: 202303
  2. ULTRACAIN EPINEFRINA [Concomitant]
     Indication: Dental local anaesthesia
     Dosage: UNK DOSE OF ULTRACAIN WITH EPINEPHRINE 40 MG/ML + 5 MICROGRAMS/ML SOLUTION FOR INJECTION
     Route: 004
     Dates: start: 202303, end: 202303

REACTIONS (3)
  - Tachycardia [Recovered/Resolved]
  - Tremor [Recovered/Resolved]
  - Hypersensitivity [Recovered/Resolved]

NARRATIVE: CASE EVENT DATE: 20230301
